FAERS Safety Report 8198382-0 (Version None)
Quarter: 2012Q1

REPORT INFORMATION
  Report Type: 
  Country: None (occurrence: None)
  Receive Date: 20120309
  Receipt Date: 20120227
  Transmission Date: 20120608
  Serious: Yes (Hospitalization)
  Sender: FDA-Public Use
  Company Number: US-SANOFI-AVENTIS-2012SA012736

PATIENT
  Sex: Female

DRUGS (1)
  1. APIDRA [Suspect]
     Route: 065
     Dates: end: 20120201

REACTIONS (6)
  - LOWER LIMB FRACTURE [None]
  - PULMONARY EMBOLISM [None]
  - BLOOD GLUCOSE FLUCTUATION [None]
  - COAGULATION TIME PROLONGED [None]
  - URETHRITIS [None]
  - PYELONEPHRITIS [None]
